FAERS Safety Report 7933348-4 (Version None)
Quarter: 2011Q4

REPORT INFORMATION
  Report Type: 
  Country: None (occurrence: None)
  Receive Date: 20111118
  Receipt Date: 20111108
  Transmission Date: 20120403
  Serious: Yes (Hospitalization)
  Sender: FDA-Public Use
  Company Number: 2011NUEUSA00051

PATIENT
  Age: 59 Year
  Sex: Male

DRUGS (6)
  1. NUEDEXTA [Suspect]
     Indication: AFFECT LABILITY
     Dosage: 1 CAP, QD
     Dates: start: 20111001, end: 20110101
  2. NUEDEXTA [Suspect]
     Indication: AFFECT LABILITY
     Dosage: 1 CAP, QD
     Dates: start: 20110101
  3. ATIVAN [Concomitant]
  4. SEROQUEL [Concomitant]
  5. DEPAKOTE [Concomitant]
  6. ANTIPSYCHOTICS [Concomitant]

REACTIONS (1)
  - GASTROINTESTINAL HAEMORRHAGE [None]
